FAERS Safety Report 16395376 (Version 1)
Quarter: 2019Q2

REPORT INFORMATION
  Report Type: Spontaneous
  Country: US (occurrence: US)
  Receive Date: 20190430
  Receipt Date: 20190430
  Transmission Date: 20190711
  Serious: Yes (Death)
  Sender: FDA-Public Use
  Company Number: None

PATIENT
  Sex: Female

DRUGS (8)
  1. MULTIPLE VIT [Concomitant]
  2. PROBIOTIC [Concomitant]
     Active Substance: PROBIOTICS NOS
  3. DILTIAZEM. [Concomitant]
     Active Substance: DILTIAZEM
  4. BIOTIN [Concomitant]
     Active Substance: BIOTIN
  5. LOSARTAN. [Concomitant]
     Active Substance: LOSARTAN
  6. INLYTA [Suspect]
     Active Substance: AXITINIB
     Route: 048
     Dates: start: 20190327
  7. ASPIRIN. [Concomitant]
     Active Substance: ASPIRIN
  8. VITAMIN B COMPLEX [Concomitant]
     Active Substance: CYANOCOBALAMIN\DEXPANTHENOL\NIACINAMIDE\PYRIDOXINE HYDROCHLORIDE\RIBOFLAVIN 5^-PHOSPHATE SODIUM\THIAMINE HYDROCHLORIDE\VITAMIN B COMPLEX

REACTIONS (1)
  - Death [None]
